FAERS Safety Report 9234715 (Version 2)
Quarter: 2013Q2

REPORT INFORMATION
  Report Type: Spontaneous
  Country: US (occurrence: US)
  Receive Date: 20130416
  Receipt Date: 20130617
  Transmission Date: 20140414
  Serious: No
  Sender: FDA-Public Use
  Company Number: US-PFIZER INC-2013114207

PATIENT
  Age: 60 Year
  Sex: Female

DRUGS (3)
  1. XALKORI [Suspect]
     Indication: LUNG NEOPLASM MALIGNANT
     Dosage: 250 MG, 2X/DAY
     Route: 048
     Dates: start: 20120302
  2. XALKORI [Suspect]
     Indication: METASTASES TO LUNG
     Dosage: 200 MG, UNK
  3. XALKORI [Suspect]
     Indication: METASTASES TO LIVER

REACTIONS (3)
  - Hepatic enzyme increased [Recovered/Resolved]
  - Disease progression [Unknown]
  - Lung neoplasm malignant [Unknown]
